FAERS Safety Report 8498470 (Version 4)
Quarter: 2013Q4

REPORT INFORMATION
  Report Type: Spontaneous
  Country: GB (occurrence: GB)
  Receive Date: 20120406
  Receipt Date: 20131106
  Transmission Date: 20140711
  Serious: Yes (Hospitalization)
  Sender: FDA-Public Use
  Company Number: GB-009507513-1203GBR00050

PATIENT
  Sex: Male

DRUGS (6)
  1. JANUVIA [Suspect]
     Dosage: 100 MG, QD
     Route: 048
  2. ASPIRIN [Concomitant]
     Dosage: 75 MG, QD
  3. BISOPROLOL [Concomitant]
     Dosage: 1 DF, QD
  4. MK-9378 [Concomitant]
     Dosage: 1 DF, QD
  5. SIMVASTATIN [Concomitant]
     Dosage: UNK UNK, QD
     Route: 048
  6. RAMIPRIL [Concomitant]
     Dosage: 1 DF, QD

REACTIONS (2)
  - Oesophageal carcinoma [Unknown]
  - Gastrointestinal disorder [Unknown]
